FAERS Safety Report 4345335-6 (Version None)
Quarter: 2004Q2

REPORT INFORMATION
  Report Type: 
  Country: None (occurrence: None)
  Receive Date: 20040420
  Receipt Date: 20040409
  Transmission Date: 20050107
  Serious: Yes (Hospitalization)
  Sender: FDA-Public Use
  Company Number: MK200404-0054-1

PATIENT
  Age: 41 Year
  Sex: Male

DRUGS (3)
  1. IMIIPRAMINE TABLETS (MFR UNKNOWN) [Suspect]
  2. CARBAMAZEPINE (MFR UNKNOWN) [Suspect]
  3. INSULIN [Concomitant]

REACTIONS (3)
  - INAPPROPRIATE ANTIDIURETIC HORMONE SECRETION [None]
  - NEUROPATHIC PAIN [None]
  - POST PROCEDURAL COMPLICATION [None]
